FAERS Safety Report 25429876 (Version 2)
Quarter: 2025Q2

REPORT INFORMATION
  Report Type: Spontaneous
  Country: CN (occurrence: CN)
  Receive Date: 20250612
  Receipt Date: 20250624
  Transmission Date: 20250717
  Serious: Yes (Other)
  Sender: AMGEN
  Company Number: CN-AMGEN-CHNSP2025111810

PATIENT
  Age: 22 Year
  Sex: Female
  Weight: 84 kg

DRUGS (2)
  1. ETANERCEPT [Suspect]
     Active Substance: ETANERCEPT
     Indication: Pustular psoriasis
     Dosage: 50 MG, WEEKLY
     Route: 065
  2. ETANERCEPT [Suspect]
     Active Substance: ETANERCEPT
     Indication: Myositis

REACTIONS (5)
  - Blood creatine phosphokinase increased [Recovered/Resolved]
  - Pneumocystis jirovecii pneumonia [Unknown]
  - Myositis [Unknown]
  - Polymyositis [Recovered/Resolved]
  - Psoriasis [Unknown]
